FAERS Safety Report 6934172-1 (Version None)
Quarter: 2010Q3

REPORT INFORMATION
  Report Type: 
  Country: None (occurrence: None)
  Receive Date: 20100820
  Receipt Date: 20100812
  Transmission Date: 20110219
  Serious: Yes (Other)
  Sender: FDA-Public Use
  Company Number: GB-PFIZER INC-2010101817

PATIENT
  Age: 61 Year
  Sex: Male

DRUGS (4)
  1. LIPITOR [Suspect]
     Indication: ACUTE CORONARY SYNDROME
     Dosage: 80 MG, 1X/DAY
  2. LIPITOR [Suspect]
     Dosage: 40 MG, UNK
  3. LIPITOR [Suspect]
     Dosage: 20 MG, UNK
  4. RAMIPRIL [Concomitant]
     Dosage: UNK

REACTIONS (1)
  - LIVER DISORDER [None]
